FAERS Safety Report 20391826 (Version 2)
Quarter: 2022Q1

REPORT INFORMATION
  Report Type: Spontaneous
  Country: US (occurrence: US)
  Receive Date: 20220128
  Receipt Date: 20220203
  Transmission Date: 20220424
  Serious: No
  Sender: FDA-Public Use
  Company Number: US-PFIZER INC-202101505846

PATIENT
  Age: 60 Year
  Sex: Female

DRUGS (3)
  1. IBRANCE [Interacting]
     Active Substance: PALBOCICLIB
     Dosage: 125 MG
     Dates: start: 20200711
  2. IBRANCE [Interacting]
     Active Substance: PALBOCICLIB
     Dosage: 125 MG
     Dates: start: 20210901
  3. PRILOSEC [Interacting]
     Active Substance: OMEPRAZOLE MAGNESIUM
     Dosage: UNK

REACTIONS (3)
  - Drug interaction [Unknown]
  - Emotional disorder [Unknown]
  - Fatigue [Unknown]
